FAERS Safety Report 7656366-2 (Version None)
Quarter: 2011Q3

REPORT INFORMATION
  Report Type: 
  Country: None (occurrence: None)
  Receive Date: 20110804
  Receipt Date: 20110218
  Transmission Date: 20111222
  Serious: Yes (Other)
  Sender: FDA-Public Use
  Company Number: CA-GLAXOSMITHKLINE-A0914315A

PATIENT
  Sex: Female

DRUGS (10)
  1. CALCITE-D [Concomitant]
  2. BISOPROLOL FUMARATE [Concomitant]
  3. TYKERB [Suspect]
     Indication: BREAST CANCER
     Dosage: 1250MG PER DAY
     Route: 048
     Dates: start: 20110203, end: 20110728
  4. LOPERAMIDE HCL [Concomitant]
  5. FUROSEMIDE [Concomitant]
  6. XELODA [Suspect]
     Indication: PRODUCT USED FOR UNKNOWN INDICATION
     Route: 065
  7. NEXIUM [Concomitant]
  8. LOMOTIL [Concomitant]
  9. DEXAMETHASONE [Concomitant]
     Dosage: 2MG SEE DOSAGE TEXT
  10. CARBAMAZEPINE [Concomitant]

REACTIONS (9)
  - PRURITUS [None]
  - ERYTHEMA [None]
  - FATIGUE [None]
  - DECREASED APPETITE [None]
  - RASH GENERALISED [None]
  - NEOPLASM MALIGNANT [None]
  - DIARRHOEA [None]
  - SKIN CHAPPED [None]
  - SKIN HAEMORRHAGE [None]
